FAERS Safety Report 7138474-8 (Version None)
Quarter: 2010Q4

REPORT INFORMATION
  Report Type: 
  Country: None (occurrence: None)
  Receive Date: 20101206
  Receipt Date: 20101202
  Transmission Date: 20110411
  Serious: Yes (Life-Threatening, Hospitalization)
  Sender: FDA-Public Use
  Company Number: PHHO2010CA18310

PATIENT
  Sex: Male
  Weight: 80.6 kg

DRUGS (2)
  1. AFINITOR [Suspect]
     Indication: METASTATIC RENAL CELL CARCINOMA
     Dosage: 10 MG / DAY
     Route: 048
     Dates: start: 20100916, end: 20101123
  2. FENTANYL [Concomitant]
     Indication: PAIN

REACTIONS (6)
  - ANAEMIA [None]
  - ASTHENIA [None]
  - JAUNDICE CHOLESTATIC [None]
  - MALIGNANT NEOPLASM PROGRESSION [None]
  - PAIN [None]
  - PANCREATITIS [None]
